FAERS Safety Report 5789900-8 (Version None)
Quarter: 2008Q2

REPORT INFORMATION
  Report Type: 
  Country: None (occurrence: None)
  Receive Date: 20080626
  Receipt Date: 20080623
  Transmission Date: 20081010
  Serious: Yes (Other)
  Sender: FDA-Public Use
  Company Number: US-ASTRAZENECA-2008UW12491

PATIENT
  Age: 63 Year
  Sex: Female

DRUGS (9)
  1. NEXIUM [Suspect]
     Indication: GASTROOESOPHAGEAL REFLUX DISEASE
     Route: 048
     Dates: start: 20080506
  2. NEXIUM [Suspect]
     Route: 048
  3. DILTIAZEM [Concomitant]
  4. SYNTHROID [Concomitant]
  5. POT-KLOR [Concomitant]
  6. PRAZASTAIN [Concomitant]
  7. ZETIA [Concomitant]
  8. DIOVAN HCT [Concomitant]
  9. CELEBREX [Concomitant]

REACTIONS (3)
  - DRUG INEFFECTIVE [None]
  - DYSPNOEA [None]
  - INFLAMMATION [None]
